FAERS Safety Report 5489451-4 (Version None)
Quarter: 2007Q4

REPORT INFORMATION
  Report Type: 
  Country: None (occurrence: None)
  Receive Date: 20071016
  Receipt Date: 20071016
  Transmission Date: 20080405
  Serious: Yes (Disabling)
  Sender: FDA-Public Use
  Company Number: None

PATIENT
  Sex: Male
  Weight: 75.75 kg

DRUGS (1)
  1. TYGACIL [Suspect]
     Indication: LEG AMPUTATION
     Dosage: 50MG IN 100 MG 0.9% NS   EVERY 12 HOURS  IV DRIP
     Route: 041
     Dates: start: 20071010, end: 20071010

REACTIONS (3)
  - FEELING ABNORMAL [None]
  - FEELING JITTERY [None]
  - VISION BLURRED [None]
